FAERS Safety Report 16129534 (Version 1)
Quarter: 2019Q1

REPORT INFORMATION
  Report Type: Spontaneous
  Country: FR (occurrence: FR)
  Receive Date: 20190328
  Receipt Date: 20190328
  Transmission Date: 20190418
  Serious: Yes (Hospitalization)
  Sender: FDA-Public Use
  Company Number: FR-JNJFOC-20190340247

PATIENT
  Age: 79 Year
  Sex: Female

DRUGS (3)
  1. TRAMADOL HYDROCHLORIDE. [Suspect]
     Active Substance: TRAMADOL HYDROCHLORIDE
     Indication: PAIN
     Route: 048
     Dates: end: 20190207
  2. CEFUROXIME. [Suspect]
     Active Substance: CEFUROXIME
     Indication: SURGERY
     Route: 042
     Dates: start: 20190116, end: 20190116
  3. INNOHEP [Suspect]
     Active Substance: TINZAPARIN SODIUM
     Indication: SURGERY
     Route: 058
     Dates: start: 20190116, end: 20190128

REACTIONS (2)
  - Eosinophilia [Recovered/Resolved]
  - Rash maculo-papular [Recovered/Resolved]

NARRATIVE: CASE EVENT DATE: 201901
